FAERS Safety Report 11358514 (Version 1)
Quarter: 2015Q3

REPORT INFORMATION
  Report Type: Spontaneous
  Country: US (occurrence: US)
  Receive Date: 20150803
  Receipt Date: 20150803
  Transmission Date: 20151125
  Serious: No
  Sender: FDA-Public Use
  Company Number: US-ELI_LILLY_AND_COMPANY-US201007007168

PATIENT
  Age: 7 Year
  Sex: Male

DRUGS (2)
  1. ZYPREXA ZYDIS [Suspect]
     Active Substance: OLANZAPINE
     Indication: AFFECTIVE DISORDER
     Dosage: 5 MG, UNK
  2. DAYTRANA [Concomitant]
     Active Substance: METHYLPHENIDATE

REACTIONS (2)
  - Accidental overdose [Unknown]
  - Off label use [Unknown]
